FAERS Safety Report 16107438 (Version 1)
Quarter: 2019Q1

REPORT INFORMATION
  Report Type: Not Available
  Country: US (occurrence: US)
  Receive Date: 20190322
  Receipt Date: 20190322
  Transmission Date: 20190418
  Serious: Yes (Other)
  Sender: FDA-Public Use
  Company Number: US-C B FLEET CO INC-201903-US-000700

PATIENT
  Sex: Female

DRUGS (2)
  1. BC (ASPIRIN\CAFFEINE) [Suspect]
     Active Substance: ASPIRIN\CAFFEINE
     Indication: DRUG DEPENDENCE
  2. BC (ASPIRIN\CAFFEINE) [Suspect]
     Active Substance: ASPIRIN\CAFFEINE
     Indication: TOOTHACHE
     Route: 048

REACTIONS (8)
  - Vision blurred [Recovered/Resolved]
  - Overdose [None]
  - Drug dependence [Not Recovered/Not Resolved]
  - Throat irritation [Not Recovered/Not Resolved]
  - Dyspepsia [Recovered/Resolved]
  - Inappropriate schedule of product administration [None]
  - Incorrect product administration duration [None]
  - Wrong technique in product usage process [None]
